FAERS Safety Report 16034067 (Version 1)
Quarter: 2019Q1

REPORT INFORMATION
  Report Type: Spontaneous
  Country: US (occurrence: US)
  Receive Date: 20190205
  Receipt Date: 20190205
  Transmission Date: 20190418
  Serious: No
  Sender: FDA-Public Use
  Company Number: None

PATIENT
  Age: 65 Year
  Sex: Female

DRUGS (1)
  1. PROLIA [Suspect]
     Active Substance: DENOSUMAB
     Route: 058
     Dates: start: 20171121

REACTIONS (2)
  - Product dose omission [None]
  - Economic problem [None]

NARRATIVE: CASE EVENT DATE: 20181215
